FAERS Safety Report 20096199 (Version 1)
Quarter: 2021Q4

REPORT INFORMATION
  Report Type: Spontaneous
  Country: US (occurrence: US)
  Receive Date: 20211122
  Receipt Date: 20211122
  Transmission Date: 20220303
  Serious: No
  Sender: FDA-Public Use
  Company Number: US-drreddys-SPO/USA/21/0143979

PATIENT
  Age: 19 Year
  Sex: Female

DRUGS (2)
  1. ZENATANE [Suspect]
     Active Substance: ISOTRETINOIN
     Indication: Product used for unknown indication
     Dosage: RMA ISSUE DATE:6 MAY 2021 12:44:39 PM,9JUNE2021 8:37:54 AM,12JULY2021 7:27:19 PM
  2. ZENATANE [Suspect]
     Active Substance: ISOTRETINOIN
     Dosage: RMA ISSUE DATE:13 AUGUST 2021 12:05:51 PM,14 SEPTEMBER 2021 9:29:33 AM

REACTIONS (1)
  - Treatment noncompliance [Unknown]
